FAERS Safety Report 20572714 (Version 2)
Quarter: 2022Q4

REPORT INFORMATION
  Report Type: Spontaneous
  Country: DE (occurrence: DE)
  Receive Date: 20220309
  Receipt Date: 20221219
  Transmission Date: 20230113
  Serious: Yes (Other)
  Sender: FDA-Public Use
  Company Number: DE-TAKEDA-2022TUS015099

PATIENT
  Sex: Female

DRUGS (2)
  1. ENTYVIO [Suspect]
     Active Substance: VEDOLIZUMAB
     Indication: Crohn^s disease
     Dosage: UNK
     Route: 065
  2. RUXOLITINIB [Concomitant]
     Active Substance: RUXOLITINIB
     Indication: Myelofibrosis
     Dosage: UNK

REACTIONS (3)
  - Primary myelofibrosis [Unknown]
  - Micturition urgency [Unknown]
  - Infection susceptibility increased [Unknown]
